FAERS Safety Report 12870731 (Version 3)
Quarter: 2018Q1

REPORT INFORMATION
  Report Type: Report from Study
  Country: US (occurrence: US)
  Receive Date: 20161020
  Receipt Date: 20180125
  Transmission Date: 20180508
  Serious: No
  Sender: FDA-Public Use
  Company Number: US-AMGEN-USASL2016136585

PATIENT
  Sex: Male

DRUGS (1)
  1. REPATHA [Suspect]
     Active Substance: EVOLOCUMAB
     Indication: BLOOD CHOLESTEROL ABNORMAL
     Dosage: 140 MG, Q2WK
     Route: 065
     Dates: start: 201601

REACTIONS (4)
  - Rhinorrhoea [Unknown]
  - Pain in jaw [Unknown]
  - Toothache [Recovering/Resolving]
  - Endodontic procedure [Unknown]

NARRATIVE: CASE EVENT DATE: 2016
